FAERS Safety Report 9536488 (Version 1)
Quarter: 2013Q2

REPORT INFORMATION
  Report Type: Spontaneous
  Country: US (occurrence: None)
  Receive Date: 20130507
  Receipt Date: 20130507
  Transmission Date: 20140414
  Serious: No
  Sender: FDA-Public Use
  Company Number: PHEH2012US024350

PATIENT
  Sex: Female
  Weight: 44.9 kg

DRUGS (2)
  1. AFINITOR (RAD) [Suspect]
     Route: 048
  2. EXEMIESTANE [Concomitant]

REACTIONS (3)
  - Tenderness [None]
  - Erythema [None]
  - Stomatitis [None]
